FAERS Safety Report 9786119 (Version 1)
Quarter: 2013Q4

REPORT INFORMATION
  Report Type: Spontaneous
  Country: RU (occurrence: RU)
  Receive Date: 20131227
  Receipt Date: 20131227
  Transmission Date: 20140711
  Serious: Yes (Hospitalization)
  Sender: FDA-Public Use
  Company Number: PHHY2013RU151447

PATIENT
  Age: 50 Year
  Sex: Female

DRUGS (4)
  1. GLIVEC [Suspect]
  2. MAGNESIUM SULFATE [Concomitant]
  3. LASIX [Concomitant]
  4. CYTOFLAVIN [Concomitant]

REACTIONS (1)
  - Cerebrovascular accident [Recovering/Resolving]
